FAERS Safety Report 18661941 (Version 4)
Quarter: 2024Q2

REPORT INFORMATION
  Report Type: Report from Study
  Country: US (occurrence: US)
  Receive Date: 20201224
  Receipt Date: 20240423
  Transmission Date: 20240716
  Serious: Yes (Other)
  Sender: FDA-Public Use
  Company Number: US-TAKEDA-2020TUS058548

PATIENT
  Sex: Female

DRUGS (1)
  1. VEDOLIZUMAB [Suspect]
     Active Substance: VEDOLIZUMAB
     Indication: Crohn^s disease
     Dosage: 300 MILLIGRAM
     Route: 042
     Dates: end: 20230110

REACTIONS (5)
  - Osteonecrosis [Unknown]
  - Anxiety [Recovered/Resolved]
  - Frustration tolerance decreased [Recovered/Resolved]
  - Poor venous access [Unknown]
  - Post-traumatic stress disorder [Unknown]
